FAERS Safety Report 5486178-X (Version None)
Quarter: 2007Q4

REPORT INFORMATION
  Report Type: 
  Country: None (occurrence: None)
  Receive Date: 20071005
  Receipt Date: 20070806
  Transmission Date: 20080405
  Serious: No
  Sender: FDA-Public Use
  Company Number: PHEH2007US10859

PATIENT
  Age: 55 Year
  Sex: Female
  Weight: 120.2 kg

DRUGS (1)
  1. TEKTURNA [Suspect]
     Indication: HYPERTENSION
     Dosage: 150 MG, QD, OTHER
     Route: 050
     Dates: start: 20070720, end: 20070727

REACTIONS (1)
  - RASH PRURITIC [None]
